FAERS Safety Report 4445548-9 (Version None)
Quarter: 2004Q3

REPORT INFORMATION
  Report Type: 
  Country: None (occurrence: None)
  Receive Date: 20040902
  Receipt Date: 20040613
  Transmission Date: 20050211
  Serious: Yes (Hospitalization)
  Sender: FDA-Public Use
  Company Number: A02200401952

PATIENT
  Age: 50 Year
  Sex: Male

DRUGS (3)
  1. PLAVIX [Suspect]
     Indication: ARTERITIS
     Dosage: 75 MG OD: TIME TO ONSET : 7 WEEKS 5 DAYS
     Route: 048
     Dates: start: 20040318, end: 20040620
  2. PLAVIX [Suspect]
     Indication: STENT PLACEMENT
     Dosage: 75 MG OD: TIME TO ONSET : 7 WEEKS 5 DAYS
     Route: 048
     Dates: start: 20040318, end: 20040620
  3. ATORVASTATIN CALCIUM [Concomitant]

REACTIONS (2)
  - DYSPNOEA EXERTIONAL [None]
  - TOTAL LUNG CAPACITY ABNORMAL [None]
